FAERS Safety Report 4305574-7 (Version None)
Quarter: 2004Q1

REPORT INFORMATION
  Report Type: 
  Country: None (occurrence: None)
  Receive Date: 20040226
  Receipt Date: 20031203
  Transmission Date: 20041129
  Serious: No
  Sender: FDA-Public Use
  Company Number: US-BRISTOL-MYERS SQUIBB COMPANY-12449310

PATIENT
  Age: 34 Year
  Sex: Female
  Weight: 105 kg

DRUGS (4)
  1. ABILIFY [Suspect]
     Indication: PARANOIA
     Route: 048
     Dates: start: 20031201
  2. ALTACE [Concomitant]
  3. NEXIUM [Concomitant]
  4. CLARITIN [Concomitant]

REACTIONS (4)
  - ABDOMINAL PAIN UPPER [None]
  - FATIGUE [None]
  - NAUSEA [None]
  - VOMITING [None]
